FAERS Safety Report 4310421-3 (Version None)
Quarter: 2004Q1

REPORT INFORMATION
  Report Type: 
  Country: None (occurrence: None)
  Receive Date: 20040303
  Receipt Date: 20040206
  Transmission Date: 20041129
  Serious: Yes (Hospitalization, Other)
  Sender: FDA-Public Use
  Company Number: PHRM2004FR00789

PATIENT
  Age: 64 Year
  Sex: Female

DRUGS (1)
  1. GLEEVEC [Suspect]
     Indication: CHRONIC MYELOID LEUKAEMIA
     Route: 048
     Dates: start: 20031029, end: 20031219

REACTIONS (8)
  - ANOREXIA [None]
  - ASTHENIA [None]
  - BLINDNESS [None]
  - BONE MARROW DEPRESSION [None]
  - PYREXIA [None]
  - RETINAL HAEMORRHAGE [None]
  - THROMBOCYTOPENIA [None]
  - VISUAL ACUITY REDUCED [None]
